FAERS Safety Report 5519672-3 (Version None)
Quarter: 2007Q4

REPORT INFORMATION
  Report Type: 
  Country: None (occurrence: None)
  Receive Date: 20071116
  Receipt Date: 20071107
  Transmission Date: 20080405
  Serious: Yes (Other)
  Sender: FDA-Public Use
  Company Number: CA-JNJFOC-20071101539

PATIENT
  Age: 78 Year

DRUGS (2)
  1. DURAGESIC-100 [Suspect]
     Indication: SPINAL FRACTURE
     Route: 062
  2. DURAGESIC-100 [Suspect]
     Indication: PAIN
     Dosage: 1X 100UG/HR PATCH PLUS 1X 25UG/HR PATCH
     Route: 062

REACTIONS (2)
  - MEDICATION ERROR [None]
  - SEDATION [None]
